FAERS Safety Report 23292257 (Version 1)
Quarter: 2023Q4

REPORT INFORMATION
  Report Type: Spontaneous
  Country: US (occurrence: None)
  Receive Date: 20231212
  Receipt Date: 20231212
  Transmission Date: 20240110
  Serious: Yes (unspecified)
  Sender: FDA-Public Use
  Company Number: None

PATIENT
  Age: 18 Year
  Sex: Male
  Weight: 66.3 kg

DRUGS (1)
  1. GAMMAGARD LIQUID [Suspect]
     Active Substance: HUMAN IMMUNOGLOBULIN G
     Dosage: OTHER FREQUENCY : ONCE;?
     Route: 042
     Dates: start: 20231028, end: 20231028

REACTIONS (5)
  - Infusion related reaction [None]
  - Chills [None]
  - Therapy interrupted [None]
  - Body temperature increased [None]
  - Vomiting [None]

NARRATIVE: CASE EVENT DATE: 20231028
